FAERS Safety Report 8432658-4 (Version None)
Quarter: 2012Q2

REPORT INFORMATION
  Report Type: 
  Country: None (occurrence: None)
  Receive Date: 20120613
  Receipt Date: 20120605
  Transmission Date: 20120825
  Serious: Yes (Hospitalization)
  Sender: FDA-Public Use
  Company Number: US-BAYER-2012-057698

PATIENT
  Age: 31 Year
  Sex: Female
  Weight: 102.49 kg

DRUGS (22)
  1. MAXALT [Concomitant]
     Indication: MIGRAINE
     Dosage: 10 MG, PRN
     Route: 048
     Dates: start: 20110315, end: 20110501
  2. TOPAMAX [Concomitant]
     Dosage: 50 MG, BID
     Route: 048
     Dates: start: 20110415, end: 20110501
  3. FEXOFENADINE [Concomitant]
     Dosage: 60 MG, BID
     Route: 048
     Dates: start: 20110301, end: 20110501
  4. TRILIPIX [Concomitant]
     Dosage: 135 MG, UNK
     Dates: start: 20110301
  5. ATIVAN [Concomitant]
     Indication: PANIC ATTACK
  6. TYLENOL W/ CODEINE NO. 3 [Concomitant]
     Indication: PAIN
     Dosage: EVERY 6 HOURS AS NEEDED
     Route: 048
     Dates: start: 20110217, end: 20110501
  7. CALCIUM [Concomitant]
     Dosage: UNK
     Dates: start: 20110501
  8. PROMETHAZINE [Concomitant]
     Dosage: 25 MG, UNK
     Dates: start: 20110315
  9. IMDUR [Concomitant]
     Dosage: 160 MG, DAILY
     Route: 048
     Dates: start: 20110311, end: 20110501
  10. TRILIPIX [Concomitant]
     Dosage: 45 MG, DAILY
     Route: 048
     Dates: start: 20110501
  11. ATIVAN [Concomitant]
     Indication: ANXIETY
     Dosage: 1 MG, PRN
     Route: 048
     Dates: start: 20110217, end: 20110501
  12. CYMBALTA [Concomitant]
     Dosage: 60 MG, HS
     Route: 048
     Dates: start: 20110214, end: 20110501
  13. DROSPIRENONE AND ETHINYL ESTRADIOL [Suspect]
  14. METFORMIN HCL [Concomitant]
     Dosage: 500 MG, DAILY
     Route: 048
     Dates: start: 20110501
  15. LEVOXYL [Concomitant]
     Dosage: 100 ?G, DAILY
     Route: 048
     Dates: start: 20110225, end: 20110501
  16. VITAMIN D [Concomitant]
     Dosage: 2000 UNIT, ONCE DAILY
     Dates: start: 20110501
  17. ATENOLOL [Concomitant]
  18. ZYPREXA [Concomitant]
     Dosage: 10 MG, AT BEDTIME AS NEEDED
     Route: 048
     Dates: start: 20110315, end: 20110501
  19. OMEPRAZOLE [Concomitant]
     Dosage: 20 MG, UNK
     Dates: start: 20110228
  20. YAZ [Suspect]
  21. YASMIN [Suspect]
  22. AZITHROMYCIN [Concomitant]
     Indication: BRONCHITIS
     Dosage: 250 MG, UNK
     Route: 048
     Dates: start: 20110427

REACTIONS (1)
  - PULMONARY EMBOLISM [None]
